FAERS Safety Report 9993108 (Version 2)
Quarter: 2014Q1

REPORT INFORMATION
  Report Type: Report from Study
  Country: US (occurrence: US)
  Receive Date: 20140310
  Receipt Date: 20140310
  Transmission Date: 20141002
  Serious: No
  Sender: FDA-Public Use
  Company Number: US-ABBVIE-13P-163-1055078-00

PATIENT
  Age: 38 Year
  Sex: Female
  Weight: 52.21 kg

DRUGS (3)
  1. LUPRON DEPOT [Suspect]
     Indication: ENDOMETRIOSIS
     Route: 030
     Dates: start: 20130214
  2. AMBIEN [Concomitant]
     Indication: INSOMNIA
     Route: 048
  3. RESCUE INHALERS [Concomitant]
     Indication: DYSPNOEA

REACTIONS (9)
  - Dysmenorrhoea [Unknown]
  - Menorrhagia [Unknown]
  - Vulvovaginal pain [Unknown]
  - Gait disturbance [Unknown]
  - Vaginal haemorrhage [Unknown]
  - Memory impairment [Unknown]
  - Mood swings [Not Recovered/Not Resolved]
  - Hot flush [Not Recovered/Not Resolved]
  - Insomnia [Not Recovered/Not Resolved]
